FAERS Safety Report 17477488 (Version 1)
Quarter: 2020Q1

REPORT INFORMATION
  Report Type: Spontaneous
  Country: US (occurrence: US)
  Receive Date: 20200228
  Receipt Date: 20200228
  Transmission Date: 20200409
  Serious: No
  Sender: FDA-Public Use
  Company Number: US-SMITH AND NEPHEW, INC-2019SMT00033

PATIENT
  Age: 102 Year
  Sex: Female

DRUGS (3)
  1. COLLAGENASE SANTYL [Suspect]
     Active Substance: COLLAGENASE CLOSTRIDIUM HISTOLYTICUM
     Indication: DECUBITUS ULCER
     Dosage: UNK
     Route: 061
  2. DERMAL WOUND CLEANSER [Suspect]
     Active Substance: BENZETHONIUM CHLORIDE
     Dosage: UNK
     Route: 061
  3. EXTRA PROTECTIVE CREAM (SMITH + NEPHEW) [Concomitant]
     Route: 061

REACTIONS (6)
  - Wound complication [Not Recovered/Not Resolved]
  - Tissue injury [Not Recovered/Not Resolved]
  - Product administration error [Not Recovered/Not Resolved]
  - Drug interaction [Not Recovered/Not Resolved]
  - Exposure via skin contact [Unknown]
  - Tissue discolouration [Not Recovered/Not Resolved]
